APPROVED DRUG PRODUCT: CEPHAPIRIN SODIUM
Active Ingredient: CEPHAPIRIN SODIUM
Strength: EQ 20GM BASE/VIAL
Dosage Form/Route: INJECTABLE;INJECTION
Application: A062723 | Product #005
Applicant: ABRAXIS PHARMACEUTICAL PRODUCTS
Approved: Nov 17, 1986 | RLD: No | RS: No | Type: DISCN